FAERS Safety Report 7193850-2 (Version None)
Quarter: 2010Q4

REPORT INFORMATION
  Report Type: 
  Country: None (occurrence: None)
  Receive Date: 20101223
  Receipt Date: 20100911
  Transmission Date: 20110411
  Serious: No
  Sender: FDA-Public Use
  Company Number: US-AMGEN-TCS437854

PATIENT

DRUGS (2)
  1. ENBREL [Suspect]
     Indication: RHEUMATOID ARTHRITIS
     Dosage: 50 MG, QWK
     Route: 058
     Dates: start: 20100801
  2. METHOTREXATE [Concomitant]
     Dosage: 2.5 MG, QD
     Dates: start: 20100501

REACTIONS (11)
  - ABDOMINAL PAIN [None]
  - ANIMAL BITE [None]
  - BLEPHAROSPASM [None]
  - CHILLS [None]
  - DYSPHONIA [None]
  - EAR PAIN [None]
  - EAR PRURITUS [None]
  - FLATULENCE [None]
  - HEADACHE [None]
  - INJECTION SITE PAIN [None]
  - PYREXIA [None]
